FAERS Safety Report 5252099-0 (Version None)
Quarter: 2007Q1

REPORT INFORMATION
  Report Type: 
  Country: None (occurrence: None)
  Receive Date: 20070220
  Receipt Date: 20070202
  Transmission Date: 20070707
  Serious: Yes (Hospitalization)
  Sender: FDA-Public Use
  Company Number: THYM-11292

PATIENT
  Age: 37 Year
  Sex: Male

DRUGS (9)
  1. THYMOGLOBULIN [Suspect]
     Indication: RENAL TRANSPLANT
     Dosage: 75 MG QD IV
     Route: 042
     Dates: start: 20060113, end: 20060113
  2. THYMOGLOBULIN [Suspect]
     Indication: RENAL TRANSPLANT
     Dates: start: 20060114, end: 20060120
  3. BACTRIM [Concomitant]
  4. VALACYCLOVIR HCL [Concomitant]
  5. HEPARIN [Concomitant]
  6. ASPIRIN [Concomitant]
  7. CELLCEPT [Concomitant]
  8. SOLU-MEDROL [Concomitant]
  9. STEROIDS (PREDNISONE OR PREDNISOLONE) [Concomitant]

REACTIONS (2)
  - PANCREATIC ABSCESS [None]
  - PANCREATIC FISTULA [None]
